FAERS Safety Report 5016920-3 (Version None)
Quarter: 2006Q2

REPORT INFORMATION
  Report Type: 
  Country: None (occurrence: None)
  Receive Date: 20060526
  Receipt Date: 20060519
  Transmission Date: 20061013
  Serious: Yes (Hospitalization)
  Sender: FDA-Public Use
  Company Number: T05-USA-03477-01

PATIENT
  Age: 87 Year
  Sex: Female
  Weight: 54.1595 kg

DRUGS (10)
  1. MEMANTINE HCL [Suspect]
     Indication: DEMENTIA ALZHEIMER'S TYPE
  2. PLACEBO (UNBLINDED) (PLACEBO) [Suspect]
     Indication: DEMENTIA ALZHEIMER'S TYPE
     Dosage: 4 TABLET QD PO
     Route: 048
     Dates: start: 20050823
  3. NORVASC [Concomitant]
  4. OSTEOBIFLEX [Concomitant]
  5. PRINIVIL [Concomitant]
  6. MULTI-VITAMIN [Concomitant]
  7. ASPIRIN [Concomitant]
  8. LIDODERM PATCH [Concomitant]
  9. ARICEPT [Concomitant]
  10. KADIAN [Concomitant]

REACTIONS (22)
  - ABDOMINAL TENDERNESS [None]
  - ARTHRITIS [None]
  - ASTHENIA [None]
  - BACK PAIN [None]
  - BLOOD CALCIUM INCREASED [None]
  - BLOOD CREATININE INCREASED [None]
  - BLOOD GLUCOSE INCREASED [None]
  - BLOOD MAGNESIUM INCREASED [None]
  - BLOOD UREA INCREASED [None]
  - BODY TEMPERATURE DECREASED [None]
  - CARBON DIOXIDE DECREASED [None]
  - CONFUSIONAL STATE [None]
  - CONSTIPATION [None]
  - DEHYDRATION [None]
  - DEPRESSION [None]
  - HYPOTENSION [None]
  - LETHARGY [None]
  - LOSS OF CONSCIOUSNESS [None]
  - RESPIRATORY RATE INCREASED [None]
  - UNRESPONSIVE TO VERBAL STIMULI [None]
  - URINARY TRACT INFECTION [None]
  - VISUAL ACUITY REDUCED [None]
